FAERS Safety Report 10167154 (Version 1)
Quarter: 2014Q2

REPORT INFORMATION
  Report Type: Spontaneous
  Country: US (occurrence: US)
  Receive Date: 20140512
  Receipt Date: 20140512
  Transmission Date: 20141212
  Serious: No
  Sender: FDA-Public Use
  Company Number: US-TEVA-480607USA

PATIENT
  Age: 18 Year
  Sex: Female
  Weight: 45.4 kg

DRUGS (4)
  1. PARAGARD 380A [Suspect]
     Indication: CONTRACEPTION
     Route: 015
     Dates: start: 20140326
  2. DEPAKOTE [Concomitant]
     Indication: BIPOLAR DISORDER
  3. LAMICTAL [Concomitant]
     Indication: BIPOLAR DISORDER
  4. ATIVAN [Concomitant]
     Indication: ANXIETY

REACTIONS (4)
  - Weight increased [Not Recovered/Not Resolved]
  - Menorrhagia [Recovered/Resolved]
  - Dysmenorrhoea [Recovered/Resolved]
  - Device expulsion [Not Recovered/Not Resolved]
